FAERS Safety Report 6461109-4 (Version None)
Quarter: 2009Q4

REPORT INFORMATION
  Report Type: 
  Country: None (occurrence: None)
  Receive Date: 20091130
  Receipt Date: 20091119
  Transmission Date: 20100525
  Serious: Yes (Other)
  Sender: FDA-Public Use
  Company Number: B0608838A

PATIENT
  Sex: Female

DRUGS (2)
  1. LAMICTAL [Suspect]
     Indication: MULTIPLE SCLEROSIS
     Dosage: 100MG PER DAY
     Dates: start: 20060101
  2. COPAXONE [Suspect]
     Indication: MULTIPLE SCLEROSIS
     Dosage: 20MG PER DAY
     Dates: start: 20080229, end: 20080401

REACTIONS (3)
  - DRUG EXPOSURE DURING PREGNANCY [None]
  - HEPATITIS CHOLESTATIC [None]
  - PREMATURE BABY [None]
